FAERS Safety Report 6954866-1 (Version None)
Quarter: 2010Q3

REPORT INFORMATION
  Report Type: 
  Country: None (occurrence: None)
  Receive Date: 20100830
  Receipt Date: 20100802
  Transmission Date: 20110219
  Serious: No
  Sender: FDA-Public Use
  Company Number: US-BAYER-201019126BCC

PATIENT
  Sex: Female

DRUGS (2)
  1. ALEVE (CAPLET) [Suspect]
     Indication: HEADACHE
     Dosage: UNKNOWN BOTTLE COUNT
     Route: 048
  2. ASPIRIN [Suspect]
     Indication: HEADACHE
     Dosage: UNKNOWN BOTTLE COUNT
     Route: 048

REACTIONS (1)
  - HEADACHE [None]
